FAERS Safety Report 5316333-0 (Version None)
Quarter: 2007Q2

REPORT INFORMATION
  Report Type: 
  Country: None (occurrence: None)
  Receive Date: 20070430
  Receipt Date: 20070414
  Transmission Date: 20071010
  Serious: Yes (Other)
  Sender: FDA-Public Use
  Company Number: 2007US-06881

PATIENT
  Age: 36 Year
  Sex: Female
  Weight: 74.8 kg

DRUGS (3)
  1. ISOTRETINOIN [Suspect]
     Dosage: SEE IMAGE
     Route: 048
     Dates: start: 20070108, end: 20070207
  2. ISOTRETINOIN [Suspect]
     Dosage: SEE IMAGE
     Route: 048
     Dates: start: 20070315, end: 20070410
  3. YASMIN [Concomitant]

REACTIONS (4)
  - BACK PAIN [None]
  - DRUG EXPOSURE DURING PREGNANCY [None]
  - DRY SKIN [None]
  - PREGNANCY [None]
